FAERS Safety Report 9553584 (Version 2)
Quarter: 2013Q4

REPORT INFORMATION
  Report Type: Spontaneous
  Country: GB (occurrence: GB)
  Receive Date: 20130925
  Receipt Date: 20131008
  Transmission Date: 20140711
  Serious: Yes (Other)
  Sender: FDA-Public Use
  Company Number: GB-PFIZER INC-2013270937

PATIENT
  Age: 65 Year
  Sex: Female
  Weight: 72 kg

DRUGS (6)
  1. ATORVASTATIN [Suspect]
     Dosage: UNK
     Dates: start: 20130809
  2. FUSIDIC ACID [Concomitant]
     Dosage: UNK
     Dates: start: 20130820, end: 20130827
  3. DIAZEPAM [Concomitant]
     Dosage: UNK
     Dates: start: 20130820, end: 20130825
  4. FLUCLOXACILLIN [Concomitant]
     Dosage: UNK
     Dates: start: 20130823, end: 20130830
  5. BETAMETHASONE VALERATE [Concomitant]
     Dosage: UNK
     Dates: start: 20130905
  6. PRAVASTATIN [Concomitant]
     Dosage: UNK
     Dates: start: 20130906

REACTIONS (2)
  - Myalgia [Recovered/Resolved]
  - Abdominal pain upper [Recovered/Resolved]
